FAERS Safety Report 6132501-2 (Version None)
Quarter: 2009Q1

REPORT INFORMATION
  Report Type: 
  Country: None (occurrence: None)
  Receive Date: 20090324
  Receipt Date: 20090313
  Transmission Date: 20090719
  Serious: Yes (Hospitalization)
  Sender: FDA-Public Use
  Company Number: 2009AP001059

PATIENT
  Age: 17 Month
  Sex: Female

DRUGS (3)
  1. TRIMONIL - SLOW RELEASE (CARBAMZEPINE) [Suspect]
     Indication: EPILEPSY
     Dosage: 112.5 MG; QD PO
     Route: 048
     Dates: start: 20090106, end: 20090117
  2. VALPROATE SODIUM [Concomitant]
  3. AMOXICILLIN TRIHYDRATE [Concomitant]

REACTIONS (3)
  - C-REACTIVE PROTEIN INCREASED [None]
  - PYREXIA [None]
  - RASH MACULO-PAPULAR [None]
